FAERS Safety Report 4528293-0 (Version None)
Quarter: 2004Q4

REPORT INFORMATION
  Report Type: 
  Country: None (occurrence: None)
  Receive Date: 20041130
  Receipt Date: 20040804
  Transmission Date: 20050328
  Serious: No
  Sender: FDA-Public Use
  Company Number: WAES 0408USA00462

PATIENT
  Age: 45 Year
  Sex: Male

DRUGS (2)
  1. ZETIA [Suspect]
     Dosage: DAILY PO
     Route: 048
  2. THERAPY UNSPECIFIED [Concomitant]

REACTIONS (2)
  - ALANINE AMINOTRANSFERASE INCREASED [None]
  - ASPARTATE AMINOTRANSFERASE INCREASED [None]
